FAERS Safety Report 13305081 (Version 1)
Quarter: 2017Q1

REPORT INFORMATION
  Report Type: Spontaneous
  Country: US (occurrence: US)
  Receive Date: 20170307
  Receipt Date: 20170307
  Transmission Date: 20170428
  Serious: Yes (Hospitalization)
  Sender: FDA-Public Use
  Company Number: None

PATIENT
  Age: 89 Year
  Sex: Male
  Weight: 101.1 kg

DRUGS (2)
  1. CEFEPIME [Suspect]
     Active Substance: CEFEPIME HYDROCHLORIDE
     Indication: CELLULITIS
  2. CEFEPIME [Suspect]
     Active Substance: CEFEPIME HYDROCHLORIDE
     Indication: OSTEOMYELITIS

REACTIONS (5)
  - Status epilepticus [None]
  - Lethargy [None]
  - Neurotoxicity [None]
  - Tremor [None]
  - Therapy cessation [None]

NARRATIVE: CASE EVENT DATE: 20161206
